FAERS Safety Report 22033621 (Version 1)
Quarter: 2023Q1

REPORT INFORMATION
  Report Type: Spontaneous
  Country: US (occurrence: US)
  Receive Date: 20230224
  Receipt Date: 20230224
  Transmission Date: 20230417
  Serious: Yes (Death, Other)
  Sender: FDA-Public Use
  Company Number: US-RECORDATI RARE DISEASE INC.-2023000802

PATIENT
  Sex: Female

DRUGS (3)
  1. HEMIN [Suspect]
     Active Substance: HEMIN
     Indication: Porphyria acute
     Dosage: UNK
     Route: 065
  2. HEMIN [Suspect]
     Active Substance: HEMIN
     Dosage: UNK
     Route: 065
  3. HEMIN [Suspect]
     Active Substance: HEMIN
     Dosage: UNK
     Route: 065

REACTIONS (9)
  - Death [Fatal]
  - Multifocal motor neuropathy [Unknown]
  - Monoplegia [Unknown]
  - Respiratory failure [Unknown]
  - Renal injury [Unknown]
  - Dysphagia [Unknown]
  - Autonomic nervous system imbalance [Unknown]
  - Mental disorder [Unknown]
  - Therapy interrupted [Unknown]
